FAERS Safety Report 4726750-5 (Version None)
Quarter: 2005Q3

REPORT INFORMATION
  Report Type: 
  Country: None (occurrence: None)
  Receive Date: 20050725
  Receipt Date: 20050419
  Transmission Date: 20060218
  Serious: No
  Sender: FDA-Public Use
  Company Number: USA050496102

PATIENT
  Age: 35 Year
  Sex: Male
  Weight: 58 kg

DRUGS (2)
  1. STRATTERA [Suspect]
     Indication: ATTENTION DEFICIT/HYPERACTIVITY DISORDER
     Dosage: 60 MG DAY
  2. ZOLOFT [Concomitant]

REACTIONS (5)
  - DECREASED APPETITE [None]
  - DRY MOUTH [None]
  - FATIGUE [None]
  - FEELING HOT [None]
  - NAUSEA [None]
